FAERS Safety Report 4846244-6 (Version None)
Quarter: 2005Q4

REPORT INFORMATION
  Report Type: 
  Country: None (occurrence: None)
  Receive Date: 20051206
  Receipt Date: 20031227
  Transmission Date: 20060501
  Serious: Yes (Life-Threatening)
  Sender: FDA-Public Use
  Company Number: DE-BRACCO-BRO-006966

PATIENT
  Sex: Male
  Weight: 43.7 kg

DRUGS (10)
  1. IOPAMIRON [Suspect]
     Indication: OESOPHAGEAL CARCINOMA
     Dosage: 3 ML/SEC
     Route: 042
     Dates: start: 20031204, end: 20031204
  2. IOPAMIRON [Suspect]
     Dosage: 3 ML/SEC
     Route: 042
     Dates: start: 20031204, end: 20031204
  3. NOVAMIN [Concomitant]
     Route: 048
     Dates: start: 20031106
  4. VOLTAREN - SLOW RELEASE ^CIBA-GEIGY^ [Concomitant]
     Route: 048
     Dates: start: 20031106
  5. MS CONTIN [Concomitant]
     Route: 048
     Dates: start: 20031106
  6. ALLOID [Concomitant]
     Route: 050
     Dates: start: 20031126
  7. PONTAL [Concomitant]
     Route: 050
     Dates: start: 20031203, end: 20031231
  8. CATLEP [Concomitant]
     Route: 050
     Dates: start: 20031203, end: 20031205
  9. HALCION [Concomitant]
     Route: 050
     Dates: start: 20031028, end: 20031204
  10. PURSENNID [Concomitant]
     Route: 048
     Dates: start: 20031204, end: 20031208

REACTIONS (2)
  - INFECTION [None]
  - STEVENS-JOHNSON SYNDROME [None]
